FAERS Safety Report 24584731 (Version 2)
Quarter: 2024Q4

REPORT INFORMATION
  Report Type: Other
  Country: US (occurrence: US)
  Receive Date: 20241106
  Receipt Date: 20241121
  Transmission Date: 20250114
  Serious: Yes (Life-Threatening, Hospitalization, Other)
  Sender: INNOGENIX, LLC
  Company Number: US-Innogenix, LLC-2164560

PATIENT
  Age: 8 Decade
  Sex: Female

DRUGS (1)
  1. BACLOFEN [Suspect]
     Active Substance: BACLOFEN
     Indication: Product used for unknown indication
     Dates: start: 20221123

REACTIONS (12)
  - Respiratory distress [Recovered/Resolved]
  - Overdose [Unknown]
  - Respiratory acidosis [Recovered/Resolved]
  - Hypokalaemia [Recovered/Resolved]
  - Hypotension [Recovered/Resolved]
  - Toxicity to various agents [Recovered/Resolved]
  - Hypertension [Recovered/Resolved]
  - Sinus bradycardia [Recovered/Resolved]
  - Agitation [Recovered/Resolved]
  - Electrocardiogram ST segment elevation [Recovered/Resolved]
  - Unresponsive to stimuli [Recovered/Resolved]
  - Stress cardiomyopathy [Recovered/Resolved]

NARRATIVE: CASE EVENT DATE: 20221124
